FAERS Safety Report 22958508 (Version 3)
Quarter: 2024Q1

REPORT INFORMATION
  Report Type: Report from Study
  Country: BR (occurrence: BR)
  Receive Date: 20230919
  Receipt Date: 20240129
  Transmission Date: 20240409
  Serious: Yes (Death, Hospitalization, Other)
  Sender: FDA-Public Use
  Company Number: BR-002147023-NVSC2023BR200929

PATIENT
  Sex: Male

DRUGS (2)
  1. ENTRESTO [Suspect]
     Active Substance: SACUBITRIL\VALSARTAN
     Indication: Cardiac failure
     Dosage: 1 DOSAGE FORM, QD (THROUGH THE MOUTH)
     Route: 048
     Dates: start: 20230817
  2. ENTRESTO [Suspect]
     Active Substance: SACUBITRIL\VALSARTAN
     Dosage: 100 MG, BID
     Route: 048
     Dates: start: 20230817

REACTIONS (7)
  - Respiratory arrest [Fatal]
  - Parkinson^s disease [Recovering/Resolving]
  - Pneumonia [Recovered/Resolved]
  - Anaemia [Recovered/Resolved]
  - Blood pressure decreased [Recovering/Resolving]
  - Dementia Alzheimer^s type [Recovering/Resolving]
  - Off label use [Unknown]

NARRATIVE: CASE EVENT DATE: 20230101
